FAERS Safety Report 7301934-0 (Version None)
Quarter: 2011Q1

REPORT INFORMATION
  Report Type: 
  Country: None (occurrence: None)
  Receive Date: 20110218
  Receipt Date: 20110210
  Transmission Date: 20110831
  Serious: Yes (Other)
  Sender: FDA-Public Use
  Company Number: CA-ROCHE-759599

PATIENT
  Sex: Female

DRUGS (1)
  1. ACCUTANE [Suspect]
     Dosage: 3 THERAPIES
     Route: 065

REACTIONS (2)
  - CUTANEOUS LUPUS ERYTHEMATOSUS [None]
  - HAIR TRANSPLANT [None]
